FAERS Safety Report 8726837 (Version 3)
Quarter: 2012Q4

REPORT INFORMATION
  Report Type: 
  Country: JP (occurrence: JP)
  Receive Date: 20120816
  Receipt Date: 20121105
  Transmission Date: 20130627
  Serious: Yes (Hospitalization)
  Sender: FDA-Public Use
  Company Number: JP-PFIZER INC-2012192997

PATIENT
  Age: 84 Year
  Sex: Male

DRUGS (6)
  1. HALCION [Suspect]
     Indication: INSOMNIA
     Dosage: 0.25 mg, UNK
     Route: 048
  2. ROHYPNOL [Suspect]
     Indication: INSOMNIA
     Dosage: 1 mg, UNK
     Route: 048
  3. LORCAM [Concomitant]
     Dosage: 4 mg, UNK
  4. CEROCRAL [Concomitant]
     Dosage: 20 mg, UNK
  5. HARNAL [Concomitant]
     Dosage: 0.2 mg, UNK
  6. LOXONIN [Concomitant]
     Dosage: 1 DF, UNK
     Route: 062

REACTIONS (2)
  - Altered state of consciousness [Recovered/Resolved]
  - Muscular weakness [Recovered/Resolved]
